FAERS Safety Report 15623080 (Version 3)
Quarter: 2019Q2

REPORT INFORMATION
  Report Type: Spontaneous
  Country: US (occurrence: US)
  Receive Date: 20181115
  Receipt Date: 20190604
  Transmission Date: 20190711
  Serious: No
  Sender: FDA-Public Use
  Company Number: US-PFIZER INC-2018463926

PATIENT
  Age: 61 Year
  Sex: Female

DRUGS (2)
  1. XELJANZ XR [Suspect]
     Active Substance: TOFACITINIB CITRATE
     Indication: RHEUMATOID ARTHRITIS
     Dosage: UNK
     Dates: start: 201811
  2. XELJANZ XR [Suspect]
     Active Substance: TOFACITINIB CITRATE
     Dosage: 11 MG, UNK
     Dates: start: 20190525, end: 20190528

REACTIONS (3)
  - Nasopharyngitis [Unknown]
  - Product dose omission [Unknown]
  - Paranasal sinus discomfort [Unknown]

NARRATIVE: CASE EVENT DATE: 20181105
